FAERS Safety Report 9714758 (Version 1)
Quarter: 2013Q4

REPORT INFORMATION
  Report Type: Report from Study
  Country: DE (occurrence: DE)
  Receive Date: 20131126
  Receipt Date: 20131126
  Transmission Date: 20140711
  Serious: Yes (Death)
  Sender: FDA-Public Use
  Company Number: DE-BAXTER-2013BAX047190

PATIENT
  Sex: 0

DRUGS (9)
  1. ENDOXAN 1G [Suspect]
     Indication: PERIPHERAL T-CELL LYMPHOMA UNSPECIFIED
     Route: 065
  2. DOXORUBICIN [Suspect]
     Indication: PERIPHERAL T-CELL LYMPHOMA UNSPECIFIED
     Route: 065
  3. VINCRISTINE [Suspect]
     Indication: PERIPHERAL T-CELL LYMPHOMA UNSPECIFIED
     Route: 065
  4. PREDNISONE [Suspect]
     Indication: PERIPHERAL T-CELL LYMPHOMA UNSPECIFIED
     Route: 065
  5. ETOPOSIDE [Suspect]
     Indication: PERIPHERAL T-CELL LYMPHOMA UNSPECIFIED
     Route: 065
  6. ALEMTUZUMAB [Suspect]
     Indication: PERIPHERAL T-CELL LYMPHOMA UNSPECIFIED
     Route: 065
  7. CLEMASTIN [Concomitant]
     Indication: PREMEDICATION
     Route: 065
  8. PARACETAMOL [Concomitant]
     Indication: PREMEDICATION
     Route: 065
  9. PREDNISOLONE [Concomitant]
     Indication: PREMEDICATION
     Route: 065

REACTIONS (1)
  - Procedural complication [Fatal]
